FAERS Safety Report 6372118-8 (Version None)
Quarter: 2009Q3

REPORT INFORMATION
  Report Type: 
  Country: None (occurrence: None)
  Receive Date: 20090917
  Receipt Date: 20090904
  Transmission Date: 20100115
  Serious: Yes (Hospitalization)
  Sender: FDA-Public Use
  Company Number: 2008EU003006

PATIENT
  Age: 41 Year
  Sex: Male
  Weight: 79 kg

DRUGS (3)
  1. ALEFACEPT INJECTION BLINDED(CODE NOT BROKEN) INJECTION [Suspect]
     Indication: RENAL TRANSPLANT
     Dosage: 1 DF, WEEKLY, SUBCUTANEOUS
     Route: 058
     Dates: start: 20080617, end: 20080908
  2. PROGRAF [Suspect]
     Indication: RENAL TRANSPLANT
     Dosage: 5 MG, BID, ORAL
     Route: 048
     Dates: start: 20081125
  3. CELLCEPT [Suspect]
     Indication: RENAL TRANSPLANT
     Dosage: 1 G, BID, ORAL
     Route: 048
     Dates: start: 20081125

REACTIONS (20)
  - BLOOD CREATININE INCREASED [None]
  - BLOOD GLUCOSE INCREASED [None]
  - BLOOD POTASSIUM INCREASED [None]
  - BLOOD SODIUM DECREASED [None]
  - BLOOD UREA INCREASED [None]
  - COMPLICATIONS OF TRANSPLANTED KIDNEY [None]
  - DECREASED APPETITE [None]
  - DEHYDRATION [None]
  - DIARRHOEA [None]
  - DRUG INTOLERANCE [None]
  - FATIGUE [None]
  - HAEMATOCRIT DECREASED [None]
  - HAEMOGLOBIN DECREASED [None]
  - HEPATOMEGALY [None]
  - HYPERTENSION [None]
  - IMMUNOSUPPRESSANT DRUG LEVEL INCREASED [None]
  - LEUKOPENIA [None]
  - PALLOR [None]
  - PROTEIN URINE PRESENT [None]
  - VOMITING [None]
